FAERS Safety Report 24579657 (Version 2)
Quarter: 2024Q4

REPORT INFORMATION
  Report Type: Report from Study
  Country: FR (occurrence: FR)
  Receive Date: 20241105
  Receipt Date: 20241221
  Transmission Date: 20250115
  Serious: Yes (Hospitalization, Other)
  Sender: AUROBINDO
  Company Number: FR-EMA-20170209-dkevhprod-132835518

PATIENT
  Age: 20 Year
  Sex: Male

DRUGS (12)
  1. PREDNISOLONE [Interacting]
     Active Substance: PREDNISOLONE
     Indication: Immunosuppression
     Dosage: UNK
     Route: 065
  2. AZATHIOPRINE [Interacting]
     Active Substance: AZATHIOPRINE
     Indication: Immunosuppression
     Dosage: UNK
     Route: 065
  3. CYCLOSPORINE [Interacting]
     Active Substance: CYCLOSPORINE
     Indication: Immunosuppression
     Dosage: UNK
     Route: 065
  4. CYCLOSPORINE [Interacting]
     Active Substance: CYCLOSPORINE
     Indication: Liver transplant
  5. ISONIAZID [Suspect]
     Active Substance: ISONIAZID
     Indication: Pulmonary tuberculosis
     Dosage: UNK
     Route: 065
  6. PYRAZINAMIDE [Suspect]
     Active Substance: PYRAZINAMIDE
     Indication: Pulmonary tuberculosis
     Dosage: UNK
     Route: 065
  7. RIFAMPIN [Interacting]
     Active Substance: RIFAMPIN
     Indication: Pulmonary tuberculosis
     Dosage: UNK
     Route: 065
  8. STREPTOMYCIN [Suspect]
     Active Substance: STREPTOMYCIN SULFATE
     Indication: Pulmonary tuberculosis
     Dosage: UNK
     Route: 065
  9. ETHAMBUTOL [Concomitant]
     Active Substance: ETHAMBUTOL HYDROCHLORIDE
     Indication: Pulmonary tuberculosis
     Dosage: UNK
     Route: 065
  10. STREPTOMYCIN [Concomitant]
     Active Substance: STREPTOMYCIN SULFATE
     Indication: Pulmonary tuberculosis
  11. RIFAMPIN [Interacting]
     Active Substance: RIFAMPIN
     Indication: Pulmonary tuberculosis
  12. ISONIAZID [Concomitant]
     Active Substance: ISONIAZID
     Indication: Pulmonary tuberculosis
     Dosage: UNK
     Route: 065

REACTIONS (6)
  - Liver transplant rejection [Unknown]
  - Jaundice [Unknown]
  - Hepatic encephalopathy [Unknown]
  - Acute hepatic failure [Unknown]
  - Alanine aminotransferase increased [Unknown]
  - Drug interaction [Unknown]
